FAERS Safety Report 6910669-5 (Version None)
Quarter: 2010Q3

REPORT INFORMATION
  Report Type: 
  Country: None (occurrence: None)
  Receive Date: 20100806
  Receipt Date: 20100727
  Transmission Date: 20110219
  Serious: Yes (Death, Life-Threatening, Hospitalization, Disabling)
  Sender: FDA-Public Use
  Company Number: DE-JNJFOC-20090107048

PATIENT
  Age: 76 Year
  Sex: Female

DRUGS (14)
  1. INFLIXIMAB [Suspect]
     Indication: RHEUMATOID ARTHRITIS
     Route: 042
     Dates: start: 20050929, end: 20071101
  2. INFLIXIMAB [Suspect]
     Route: 042
     Dates: start: 20050929, end: 20071101
  3. INFLIXIMAB [Suspect]
     Route: 042
     Dates: start: 20050929, end: 20071101
  4. METHOTREXATE [Concomitant]
     Indication: RHEUMATOID ARTHRITIS
  5. METHOTREXATE [Concomitant]
  6. METHOTREXATE [Concomitant]
  7. PREDNISOLONE [Concomitant]
     Indication: RHEUMATOID ARTHRITIS
  8. PREDNISOLONE [Concomitant]
  9. TRAMUNDIN RETARD [Concomitant]
  10. VIGANTOLETTEN [Concomitant]
     Dosage: 1000
  11. CALCIUM [Concomitant]
  12. CIMETIDINE [Concomitant]
  13. RAMIPRIL [Concomitant]
  14. THYRONAJOD [Concomitant]
     Dosage: 50 YG

REACTIONS (1)
  - HYPOPHARYNGEAL CANCER [None]
